FAERS Safety Report 6199453-0 (Version None)
Quarter: 2009Q2

REPORT INFORMATION
  Report Type: 
  Country: None (occurrence: None)
  Receive Date: 20090522
  Receipt Date: 20090512
  Transmission Date: 20091009
  Serious: Yes (Death, Hospitalization)
  Sender: FDA-Public Use
  Company Number: DE-PFIZER INC-2009204335

PATIENT
  Age: 71 Year

DRUGS (3)
  1. SUNITINIB MALATE [Suspect]
     Indication: ACUTE MYELOID LEUKAEMIA
     Dosage: 25 MG, 1X/DAY
     Route: 048
     Dates: start: 20090105, end: 20090427
  2. CYTARABINE [Suspect]
     Indication: ACUTE MYELOID LEUKAEMIA
     Dosage: 3820 MG, UNK
     Route: 042
     Dates: start: 20090105
  3. DAUNORUBICIN HCL [Suspect]
     Indication: ACUTE MYELOID LEUKAEMIA
     Dosage: UNK
     Route: 042
     Dates: start: 20090105, end: 20090427

REACTIONS (3)
  - ILEUS [None]
  - RASH [None]
  - URINARY TRACT INFECTION [None]
